FAERS Safety Report 5493262-3 (Version None)
Quarter: 2007Q4

REPORT INFORMATION
  Report Type: 
  Country: None (occurrence: None)
  Receive Date: 20071022
  Receipt Date: 20071022
  Transmission Date: 20080405
  Serious: Yes (Life-Threatening, Other)
  Sender: FDA-Public Use
  Company Number: None

PATIENT
  Sex: Female
  Weight: 81.6475 kg

DRUGS (1)
  1. RHINOCORT AQUA NASAL SPRAY 32 MCG [Suspect]
     Indication: RHINITIS
     Dosage: 2 SPRAYS EACH NOSTRIL PER DAY
     Route: 045
     Dates: start: 19980101, end: 20070101

REACTIONS (2)
  - CUSHINGOID [None]
  - TYPE 2 DIABETES MELLITUS [None]
